FAERS Safety Report 21554313 (Version 1)
Quarter: 2022Q4

REPORT INFORMATION
  Report Type: Other
  Country: None (occurrence: IT)
  Receive Date: 20221104
  Receipt Date: 20221104
  Transmission Date: 20230112
  Serious: Yes (Other)
  Sender: FDA-Public Use
  Company Number: IT-MLV Pharma LLC-2134503

PATIENT
  Sex: Male

DRUGS (4)
  1. BETAMETHASONE DIPROPIONATE [Suspect]
     Active Substance: BETAMETHASONE DIPROPIONATE
     Indication: Foetal exposure during pregnancy
     Route: 064
  2. CISPLATIN [Suspect]
     Active Substance: CISPLATIN
     Route: 064
  3. CARBOPLATIN [Suspect]
     Active Substance: CARBOPLATIN
     Route: 064
  4. PACLITAXEL [Suspect]
     Active Substance: PACLITAXEL
     Route: 065

REACTIONS (1)
  - Foetal growth restriction [Unknown]
